FAERS Safety Report 4287569-5 (Version None)
Quarter: 2004Q1

REPORT INFORMATION
  Report Type: 
  Country: None (occurrence: None)
  Receive Date: 20040205
  Receipt Date: 20040107
  Transmission Date: 20041129
  Serious: Yes (Life-Threatening)
  Sender: FDA-Public Use
  Company Number: A06200400001

PATIENT
  Age: 78 Year
  Sex: Male

DRUGS (3)
  1. ELOXATIN [Suspect]
     Indication: COLON CANCER
     Dosage: 85 MG/M2 OTHER ; INTRAVENOUS DRIP
     Route: 041
     Dates: start: 20031224, end: 20031224
  2. ELOXATIN [Suspect]
     Indication: METASTASES TO LIVER
     Dosage: 85 MG/M2 OTHER ; INTRAVENOUS DRIP
     Route: 041
     Dates: start: 20031224, end: 20031224
  3. XELODA [Concomitant]

REACTIONS (3)
  - INTERSTITIAL LUNG DISEASE [None]
  - METABOLIC ACIDOSIS [None]
  - RESPIRATORY FAILURE [None]
